FAERS Safety Report 8901299 (Version 1)
Quarter: 2012Q4

REPORT INFORMATION
  Report Type: 
  Country: US (occurrence: US)
  Receive Date: 20121109
  Receipt Date: 20121109
  Transmission Date: 20130627
  Serious: No
  Sender: FDA-Public Use
  Company Number: US-B.I. PHARMACEUTICALS,INC./RIDGEFIELD-2012-BP-27226BP

PATIENT
  Age: 47 None
  Sex: Female
  Weight: 51 kg

DRUGS (6)
  1. SPIRIVA [Suspect]
     Indication: CHRONIC OBSTRUCTIVE PULMONARY DISEASE
     Dosage: 18 mcg
     Route: 055
     Dates: start: 2010
  2. SPIRIVA [Suspect]
     Dosage: 18 mcg
     Route: 048
     Dates: start: 20121105, end: 20121105
  3. LEXAPRO [Concomitant]
     Indication: MOOD SWINGS
     Dates: start: 2009
  4. DULERA [Concomitant]
     Indication: LUNG DISORDER
     Dosage: 4 puf
     Route: 055
     Dates: start: 201201
  5. RESTORIL [Concomitant]
     Indication: SLEEP DISORDER
     Dosage: 30 mg
     Route: 048
     Dates: start: 2009
  6. LORATAB [Concomitant]
     Indication: BLADDER PAIN
     Route: 048

REACTIONS (2)
  - Incorrect route of drug administration [Not Recovered/Not Resolved]
  - Clostridium difficile infection [Not Recovered/Not Resolved]
